FAERS Safety Report 11855544 (Version 1)
Quarter: 2015Q4

REPORT INFORMATION
  Report Type: Spontaneous
  Country: US (occurrence: US)
  Receive Date: 20151221
  Receipt Date: 20151221
  Transmission Date: 20160305
  Serious: No
  Sender: FDA-Public Use
  Company Number: US-PERRIGO-15US010448

PATIENT
  Age: 71 Year
  Sex: Male
  Weight: 72.56 kg

DRUGS (1)
  1. MUPIROCIN. [Suspect]
     Active Substance: MUPIROCIN
     Indication: CELLULITIS
     Dosage: 1 THIN APPLICATION, BID
     Route: 061
     Dates: start: 20150927, end: 20151003

REACTIONS (2)
  - Incorrect drug administration duration [Recovered/Resolved]
  - Drug ineffective for unapproved indication [Unknown]

NARRATIVE: CASE EVENT DATE: 20150927
